FAERS Safety Report 5337229-4 (Version None)
Quarter: 2007Q2

REPORT INFORMATION
  Report Type: 
  Country: None (occurrence: None)
  Receive Date: 20070529
  Receipt Date: 20070524
  Transmission Date: 20071010
  Serious: Yes (Other)
  Sender: FDA-Public Use
  Company Number: A0652903A

PATIENT
  Sex: Female

DRUGS (7)
  1. TYKERB [Suspect]
     Indication: BREAST CANCER
     Dosage: 1250MG UNKNOWN
     Route: 048
  2. XELODA [Concomitant]
  3. NORCO [Concomitant]
  4. ATIVAN [Concomitant]
  5. TRIAMTERENE [Concomitant]
  6. HYDROCODONE BITARTRATE [Concomitant]
  7. TESSALON [Concomitant]

REACTIONS (12)
  - ABDOMINAL PAIN UPPER [None]
  - DIARRHOEA [None]
  - ERYTHEMA [None]
  - FATIGUE [None]
  - HYPOAESTHESIA [None]
  - MOUTH ULCERATION [None]
  - NAUSEA [None]
  - PALPITATIONS [None]
  - PARAESTHESIA [None]
  - PULMONARY OEDEMA [None]
  - SKIN ULCER [None]
  - VOMITING [None]
